FAERS Safety Report 24527158 (Version 1)
Quarter: 2024Q4

REPORT INFORMATION
  Report Type: Other
  Country: US (occurrence: US)
  Receive Date: 20241021
  Receipt Date: 20241021
  Transmission Date: 20250115
  Serious: Yes (Disabling, Other)
  Sender: GLAUKOS
  Company Number: US-GLK-002387

PATIENT
  Age: 34 Year
  Sex: Female

DRUGS (3)
  1. PHOTREXA [Suspect]
     Active Substance: RIBOFLAVIN 5^-PHOSPHATE SODIUM
     Indication: Keratoconus
     Route: 047
     Dates: start: 20241003, end: 20241003
  2. PHOTREXA VISCOUS [Suspect]
     Active Substance: RIBOFLAVIN 5^-PHOSPHATE SODIUM
     Indication: Keratoconus
     Route: 047
     Dates: start: 20241003, end: 20241003
  3. DEVICE [Suspect]
     Active Substance: DEVICE
     Dosage: UNKNOWN

REACTIONS (8)
  - Blindness transient [Recovering/Resolving]
  - Corneal opacity [Recovering/Resolving]
  - Eye complication associated with device [Recovering/Resolving]
  - Eye infection staphylococcal [Recovering/Resolving]
  - Visual impairment [Recovering/Resolving]
  - Blepharitis [Recovering/Resolving]
  - Keratitis bacterial [Recovering/Resolving]
  - Ulcerative keratitis [Recovering/Resolving]

NARRATIVE: CASE EVENT DATE: 20241005
